FAERS Safety Report 17916404 (Version 3)
Quarter: 2021Q4

REPORT INFORMATION
  Report Type: Spontaneous
  Country: DE (occurrence: DE)
  Receive Date: 20200619
  Receipt Date: 20211124
  Transmission Date: 20220303
  Serious: Yes (Hospitalization)
  Sender: FDA-Public Use
  Company Number: DE-ADRED-05091-01

PATIENT
  Age: 77 Year
  Sex: Female
  Weight: 50.2 kg

DRUGS (14)
  1. ZOPICLONE [Suspect]
     Active Substance: ZOPICLONE
     Indication: Product used for unknown indication
     Dosage: 7.5 MILLIGRAM, QD, 7.5 MG, 0-0-0-1.5
  2. AMITRIPTYLINE [Suspect]
     Active Substance: AMITRIPTYLINE
     Indication: Product used for unknown indication
     Dosage: 90 MILLIGRAM, QD, 90 MG, 0-0-1-0
  3. TRAMADOL [Suspect]
     Active Substance: TRAMADOL
     Indication: Product used for unknown indication
     Dosage: 100 MILLIGRAM, QID, 100 MG, 1-1-1-1
  4. TRAMADOL [Suspect]
     Active Substance: TRAMADOL
     Dosage: 100 MILLIGRAM, QID, 100 MG, 1-1-1-1
  5. AMOXICILLIN\CLAVULANIC ACID [Suspect]
     Active Substance: AMOXICILLIN\CLAVULANIC ACID
     Indication: Product used for unknown indication
     Dosage: 875/125 MG, TWICE DAILY SINCE 1002202020
  6. GABAPENTIN [Suspect]
     Active Substance: GABAPENTIN
     Indication: Product used for unknown indication
     Dosage: 300 MILLIGRAM, QD, 300 MG, 0-0-1-0
  7. MELPERONE [Suspect]
     Active Substance: MELPERONE
     Indication: Product used for unknown indication
     Dosage: 50 MILLIGRAM, QD, 50 MG, 0-0-0-2
  8. BISOPROLOL [Concomitant]
     Active Substance: BISOPROLOL
     Dosage: 2.5 MILLIGRAM, QD, 2.5 MG, 1-0-0-0
  9. METOCLOPRAMID                      /00041901/ [Concomitant]
     Dosage: 10 MILLIGRAM, BID, 10 MG, 1-0-1-0
  10. PANTOPRAZOLE [Concomitant]
     Active Substance: PANTOPRAZOLE
     Dosage: 40 MILLIGRAM, QD, 40 MG, 1-0-0-0
  11. METAMIZOL                          /06276701/ [Concomitant]
     Dosage: 500 MILLIGRAM, TID, 500 MG, 1-1-1-0
  12. VITAMIN D                          /00318501/ [Concomitant]
     Dosage: UNK, QD, 1000 IE, 1-0-0-0
  13. TORSEMIDE [Concomitant]
     Active Substance: TORSEMIDE
     Dosage: 20 MILLIGRAM, QD, 20 MG, 1-0-0-0
  14. PREDNISOLON                        /00016201/ [Concomitant]
     Dosage: 20 MG, 1-0-0-0

REACTIONS (4)
  - Somnolence [Unknown]
  - Hypothermia [Unknown]
  - Peripheral circulatory failure [Unknown]
  - Hypotension [Unknown]
